FAERS Safety Report 8831293 (Version 2)
Quarter: 2012Q4

REPORT INFORMATION
  Report Type: 
  Country: JP (occurrence: JP)
  Receive Date: 20121008
  Receipt Date: 20121101
  Transmission Date: 20130627
  Serious: Yes (Life-Threatening)
  Sender: FDA-Public Use
  Company Number: JP-PFIZER INC-2012244172

PATIENT
  Age: 52 Year
  Sex: Male

DRUGS (9)
  1. SUTENT [Suspect]
     Indication: METASTATIC RENAL CELL CARCINOMA
     Dosage: 50 mg, 1x/day
     Route: 048
     Dates: start: 20110712, end: 20110809
  2. SUTENT [Suspect]
     Dosage: 50 mg, 1x/day
     Route: 048
     Dates: start: 20110823
  3. SUTENT [Suspect]
     Dosage: 50 mg, 1x/day
     Route: 048
     Dates: start: 20111005
  4. SUTENT [Suspect]
     Dosage: 25 mg, 1x/day
     Route: 048
     Dates: start: 20120105, end: 20120202
  5. SUTENT [Suspect]
     Dosage: 25 mg, 1x/day
     Route: 048
     Dates: start: 20120216, end: 20120315
  6. SUTENT [Suspect]
     Dosage: 50 mg, 1x/day
     Route: 048
     Dates: start: 20120329, end: 20120426
  7. SUTENT [Suspect]
     Dosage: 50 mg, 1x/day
     Route: 048
     Dates: start: 20120517, end: 20120613
  8. SUTENT [Suspect]
     Dosage: 37.5 mg, 1x/day
     Route: 048
     Dates: start: 20120704, end: 20120802
  9. SUTENT [Suspect]
     Dosage: 37.5 mg, 1x/day
     Route: 048
     Dates: start: 20120824, end: 20120920

REACTIONS (3)
  - Blood triglycerides abnormal [Not Recovered/Not Resolved]
  - White blood cell count decreased [Unknown]
  - Dysgeusia [Unknown]
